FAERS Safety Report 4859445-8 (Version None)
Quarter: 2005Q4

REPORT INFORMATION
  Report Type: 
  Country: None (occurrence: None)
  Receive Date: 20051215
  Receipt Date: 20051202
  Transmission Date: 20060501
  Serious: Yes (Other)
  Sender: FDA-Public Use
  Company Number: 2005166600

PATIENT
  Age: 65 Year
  Sex: Male

DRUGS (5)
  1. SULPERAZON (SULBACTAM, CEFOPERAZONE) [Suspect]
     Indication: CHOLECYSTITIS
     Dosage: 2 GRAM, INTRAVENOUS
     Route: 042
     Dates: start: 20051116, end: 20051128
  2. GLYCEOL (FRUCTOSE, GLYCEROL) [Concomitant]
  3. ALEVIATIN (PHENYTOIN) [Concomitant]
  4. FAMOTIDINE [Concomitant]
  5. NICARDIPINE HCL [Concomitant]

REACTIONS (3)
  - HAEMORRHAGIC CEREBRAL INFARCTION [None]
  - HAEMORRHAGIC DIATHESIS [None]
  - PROTHROMBIN LEVEL DECREASED [None]
